FAERS Safety Report 19133768 (Version 1)
Quarter: 2021Q2

REPORT INFORMATION
  Report Type: Spontaneous
  Country: US (occurrence: US)
  Receive Date: 20210414
  Receipt Date: 20210414
  Transmission Date: 20210717
  Serious: No
  Sender: FDA-Public Use
  Company Number: None

PATIENT
  Age: 72 Year
  Sex: Male

DRUGS (1)
  1. ZYTIGA [Suspect]
     Active Substance: ABIRATERONE ACETATE
     Indication: PROSTATE CANCER
     Route: 048
     Dates: start: 202012

REACTIONS (6)
  - Blood disorder [None]
  - Vomiting [None]
  - Pyrexia [None]
  - Hypotension [None]
  - Infection [None]
  - Urinary tract infection [None]

NARRATIVE: CASE EVENT DATE: 20210410
